FAERS Safety Report 4380352-1 (Version None)
Quarter: 2004Q2

REPORT INFORMATION
  Report Type: 
  Country: None (occurrence: None)
  Receive Date: 20040616
  Receipt Date: 20040616
  Transmission Date: 20050107
  Serious: Yes (Other)
  Sender: FDA-Public Use
  Company Number: None

PATIENT
  Age: 78 Year
  Sex: Male
  Weight: 81.6475 kg

DRUGS (3)
  1. PRAVACHOL [Suspect]
     Indication: CARDITIS
     Dosage: 40 MG /D PO
     Route: 048
     Dates: end: 19990901
  2. TENORMIN [Concomitant]
  3. LESCOL [Suspect]
     Dosage: 20 MG/D PO
     Route: 048
     Dates: start: 20010101, end: 20030201

REACTIONS (3)
  - DIARRHOEA [None]
  - NAUSEA [None]
  - NEUROPATHY PERIPHERAL [None]
